FAERS Safety Report 4947441-1 (Version None)
Quarter: 2006Q1

REPORT INFORMATION
  Report Type: 
  Country: None (occurrence: None)
  Receive Date: 20060317
  Receipt Date: 20050810
  Transmission Date: 20060701
  Serious: Yes (Hospitalization, Disabling)
  Sender: FDA-Public Use
  Company Number: US-MERCK-0508USA01979

PATIENT
  Age: 64 Year
  Sex: Female
  Weight: 61 kg

DRUGS (18)
  1. VIOXX [Suspect]
     Indication: ARTHRALGIA
     Route: 048
     Dates: start: 19990101, end: 20040101
  2. VIOXX [Suspect]
     Route: 065
  3. LIPITOR [Concomitant]
     Route: 065
  4. SULINDAC [Concomitant]
     Route: 065
  5. BELLERGAL-S TABLETS [Concomitant]
     Route: 065
  6. TOPROL-XL [Concomitant]
     Route: 065
  7. TOPROL-XL [Concomitant]
     Route: 065
  8. TOPROL-XL [Concomitant]
     Route: 065
  9. TOPROL-XL [Concomitant]
     Route: 065
  10. PLAVIX [Concomitant]
     Route: 065
  11. ASPIRIN [Concomitant]
     Route: 065
  12. CALCIUM (UNSPECIFIED) [Concomitant]
     Route: 065
  13. VITAMIN E [Concomitant]
     Route: 065
  14. ULTRAM [Concomitant]
     Route: 065
  15. PRILOSEC [Concomitant]
     Route: 065
  16. VITAMINS (UNSPECIFIED) [Concomitant]
     Route: 065
  17. FERROUS SULFATE [Concomitant]
     Route: 065
  18. ZOCOR [Concomitant]
     Route: 065

REACTIONS (6)
  - ACUTE CORONARY SYNDROME [None]
  - ANXIETY [None]
  - CORONARY ARTERY DISEASE [None]
  - CORONARY ARTERY STENOSIS [None]
  - MYOCARDIAL INFARCTION [None]
  - MYOCARDIAL ISCHAEMIA [None]
